FAERS Safety Report 25634718 (Version 1)
Quarter: 2025Q3

REPORT INFORMATION
  Report Type: Report from Study
  Country: US (occurrence: US)
  Receive Date: 20250801
  Receipt Date: 20250801
  Transmission Date: 20251020
  Serious: Yes (Hospitalization)
  Sender: ABBVIE
  Company Number: US-ABBVIE-5724914

PATIENT
  Age: 20 Year
  Sex: Female

DRUGS (1)
  1. HUMIRA [Suspect]
     Active Substance: ADALIMUMAB
     Indication: Crohn^s disease
     Route: 058
     Dates: start: 20180101, end: 20211231

REACTIONS (5)
  - Limb injury [Not Recovered/Not Resolved]
  - Vasculitis [Not Recovered/Not Resolved]
  - Pain [Unknown]
  - Gait disturbance [Unknown]
  - Inflammatory marker decreased [Unknown]

NARRATIVE: CASE EVENT DATE: 20211201
